FAERS Safety Report 5743391-1 (Version None)
Quarter: 2008Q2

REPORT INFORMATION
  Report Type: 
  Country: None (occurrence: None)
  Receive Date: 20080515
  Receipt Date: 20080515
  Transmission Date: 20081010
  Serious: Yes (Other)
  Sender: FDA-Public Use
  Company Number: None

PATIENT
  Age: 33 Year
  Sex: Female
  Weight: 56.6996 kg

DRUGS (2)
  1. SINGULAIR [Suspect]
     Indication: ASTHMA
     Dosage: 10MG 1X DAILY PO
     Route: 048
     Dates: start: 20080220, end: 20080511
  2. SINGULAIR [Suspect]
     Indication: MULTIPLE ALLERGIES
     Dosage: 10MG 1X DAILY PO
     Route: 048
     Dates: start: 20080220, end: 20080511

REACTIONS (2)
  - LUNG DISORDER [None]
  - PAIN [None]
